FAERS Safety Report 7673980-9 (Version None)
Quarter: 2011Q3

REPORT INFORMATION
  Report Type: 
  Country: None (occurrence: None)
  Receive Date: 20110810
  Receipt Date: 20110728
  Transmission Date: 20111222
  Serious: Yes (Hospitalization)
  Sender: FDA-Public Use
  Company Number: BR-US-EMD SERONO, INC.-7073927

PATIENT
  Sex: Male

DRUGS (1)
  1. REBIF [Suspect]
     Indication: RELAPSING-REMITTING MULTIPLE SCLEROSIS
     Route: 058
     Dates: start: 20101105

REACTIONS (4)
  - SCAPULA FRACTURE [None]
  - UPPER LIMB FRACTURE [None]
  - SPINAL FRACTURE [None]
  - ROAD TRAFFIC ACCIDENT [None]
